FAERS Safety Report 7769332-3 (Version None)
Quarter: 2011Q3

REPORT INFORMATION
  Report Type: 
  Country: None (occurrence: None)
  Receive Date: 20110922
  Receipt Date: 20110916
  Transmission Date: 20111222
  Serious: Yes (Hospitalization)
  Sender: FDA-Public Use
  Company Number: FR-PFIZER INC-2011219394

PATIENT
  Age: 79 Year
  Sex: Male

DRUGS (2)
  1. ESTRACYT [Suspect]
     Indication: PROSTATE CANCER
     Dosage: 2 DF, 2X/DAY
     Route: 048
     Dates: start: 20100601
  2. DECAPEPTYL [Concomitant]
     Dosage: 1 DF, MONTHLY
     Route: 030

REACTIONS (1)
  - MICROANGIOPATHIC HAEMOLYTIC ANAEMIA [None]
